FAERS Safety Report 7769134-8 (Version None)
Quarter: 2011Q3

REPORT INFORMATION
  Report Type: 
  Country: None (occurrence: None)
  Receive Date: 20110922
  Receipt Date: 20100112
  Transmission Date: 20111222
  Serious: No
  Sender: FDA-Public Use
  Company Number: US-ASTRAZENECA-2011SE02182

PATIENT
  Age: 45 Year
  Sex: Male

DRUGS (2)
  1. SEROQUEL XR [Suspect]
     Indication: MAJOR DEPRESSION
     Route: 048
  2. CELEXA [Concomitant]
     Indication: MAJOR DEPRESSION
     Route: 048

REACTIONS (1)
  - HYPERSOMNIA [None]
